FAERS Safety Report 9495333 (Version 1)
Quarter: 2013Q3

REPORT INFORMATION
  Report Type: Spontaneous
  Country: FR (occurrence: FR)
  Receive Date: 20130903
  Receipt Date: 20130903
  Transmission Date: 20140515
  Serious: Yes (Hospitalization)
  Sender: FDA-Public Use
  Company Number: FR-PFIZER INC-2013247830

PATIENT
  Age: 86 Year
  Sex: Male

DRUGS (2)
  1. TAHOR [Suspect]
     Indication: DYSLIPIDAEMIA
     Dosage: 80 MG, UNK
     Route: 048
     Dates: start: 2008, end: 20130720
  2. CARDENSIEL [Suspect]
     Indication: HYPERTENSION
     Dosage: 2.5 MG, DAILY
     Route: 048
     Dates: start: 20080528, end: 20130720

REACTIONS (1)
  - Interstitial lung disease [Recovering/Resolving]
